FAERS Safety Report 10783423 (Version 1)
Quarter: 2015Q1

REPORT INFORMATION
  Report Type: Spontaneous
  Country: GR (occurrence: GR)
  Receive Date: 20150210
  Receipt Date: 20150210
  Transmission Date: 20150721
  Serious: Yes (Other)
  Sender: FDA-Public Use
  Company Number: ALCN2015GR001065

PATIENT
  Sex: Female

DRUGS (1)
  1. TRAVATAN [Suspect]
     Active Substance: TRAVOPROST
     Dosage: UNK
     Route: 047

REACTIONS (5)
  - Dizziness [Unknown]
  - Dysphonia [Unknown]
  - Nervous system disorder [Unknown]
  - Asthenia [Unknown]
  - Fatigue [Unknown]
